FAERS Safety Report 22172315 (Version 1)
Quarter: 2023Q2

REPORT INFORMATION
  Report Type: Spontaneous
  Country: US (occurrence: US)
  Receive Date: 20230404
  Receipt Date: 20230404
  Transmission Date: 20230721
  Serious: No
  Sender: FDA-Public Use
  Company Number: US-drreddys-LIT/USA/23/0162491

PATIENT
  Age: 28 Year
  Sex: Male

DRUGS (21)
  1. CITALOPRAM [Suspect]
     Active Substance: CITALOPRAM HYDROBROMIDE
     Indication: Psychiatric symptom
  2. DIVALPROEX SODIUM [Suspect]
     Active Substance: DIVALPROEX SODIUM
     Indication: Psychiatric symptom
  3. LAMOTRIGINE [Suspect]
     Active Substance: LAMOTRIGINE
     Indication: Psychiatric symptom
  4. METHYLPHENIDATE HYDROCHLORIDE [Suspect]
     Active Substance: METHYLPHENIDATE HYDROCHLORIDE
     Indication: Psychiatric symptom
  5. OLANZAPINE [Suspect]
     Active Substance: OLANZAPINE
     Indication: Psychiatric symptom
  6. ZOLPIDEM [Suspect]
     Active Substance: ZOLPIDEM TARTRATE
     Indication: Psychiatric symptom
  7. VENLAFAXINE HYDROCHLORIDE [Suspect]
     Active Substance: VENLAFAXINE HYDROCHLORIDE
     Indication: Psychiatric symptom
  8. ALPRAZOLAM [Suspect]
     Active Substance: ALPRAZOLAM
     Indication: Psychiatric symptom
  9. ARIPIPRAZOLE [Suspect]
     Active Substance: ARIPIPRAZOLE
     Indication: Psychiatric symptom
  10. BUSPIRONE [Suspect]
     Active Substance: BUSPIRONE HYDROCHLORIDE
     Indication: Psychiatric symptom
  11. CLOMIPRAMINE [Suspect]
     Active Substance: CLOMIPRAMINE
     Indication: Psychiatric symptom
  12. DULOXETINE [Suspect]
     Active Substance: DULOXETINE
     Indication: Psychiatric symptom
  13. ESCITALOPRAM [Suspect]
     Active Substance: ESCITALOPRAM OXALATE
     Indication: Psychiatric symptom
  14. FLUVOXAMINE [Suspect]
     Active Substance: FLUVOXAMINE
     Indication: Psychiatric symptom
  15. MIRTAZAPINE [Suspect]
     Active Substance: MIRTAZAPINE
     Indication: Psychiatric symptom
  16. MODAFINIL [Suspect]
     Active Substance: MODAFINIL
     Indication: Psychiatric symptom
  17. PAROXETINE [Suspect]
     Active Substance: PAROXETINE
     Indication: Psychiatric symptom
  18. SELEGILINE [Suspect]
     Active Substance: SELEGILINE
     Indication: Psychiatric symptom
     Route: 062
  19. TOPIRAMATE [Suspect]
     Active Substance: TOPIRAMATE
     Indication: Psychiatric symptom
  20. TRAZODONE [Suspect]
     Active Substance: TRAZODONE HYDROCHLORIDE
     Indication: Psychiatric symptom
  21. VORTIOXETINE [Suspect]
     Active Substance: VORTIOXETINE
     Indication: Psychiatric symptom

REACTIONS (2)
  - Peripheral swelling [Unknown]
  - Drug ineffective [Unknown]
